FAERS Safety Report 22217438 (Version 1)
Quarter: 2023Q2

REPORT INFORMATION
  Report Type: Spontaneous
  Country: KW (occurrence: KW)
  Receive Date: 20230417
  Receipt Date: 20230417
  Transmission Date: 20230721
  Serious: No
  Sender: FDA-Public Use
  Company Number: KW-ALKEM LABORATORIES LIMITED-KW-ALKEM-2022-04645

PATIENT
  Age: 48 Year
  Sex: Female

DRUGS (2)
  1. ARIPIPRAZOLE [Suspect]
     Active Substance: ARIPIPRAZOLE
     Indication: Hyperprolactinaemia
     Dosage: 3 MILLIGRAM
     Route: 065
  2. RISPERIDONE [Concomitant]
     Active Substance: RISPERIDONE
     Indication: Product used for unknown indication
     Dosage: 4 MILLIGRAM/DAY
     Route: 065

REACTIONS (2)
  - Bundle branch block left [Recovered/Resolved]
  - ECG signs of myocardial ischaemia [Recovered/Resolved]
